FAERS Safety Report 7495981-6 (Version None)
Quarter: 2011Q2

REPORT INFORMATION
  Report Type: 
  Country: None (occurrence: None)
  Receive Date: 20110523
  Receipt Date: 20110519
  Transmission Date: 20111010
  Serious: Yes (Other)
  Sender: FDA-Public Use
  Company Number: JP-PFIZER INC-2011108306

PATIENT
  Age: 75 Year
  Sex: Male

DRUGS (12)
  1. GASMOTIN [Concomitant]
     Dosage: UNK
  2. METILDIGOXIN [Concomitant]
     Dosage: UNK
  3. CANDESARTAN CILEXETIL [Concomitant]
     Dosage: UNK
  4. TRICOR [Concomitant]
     Dosage: UNK
  5. LYRICA [Suspect]
     Dosage: 150 MG/DAY
     Route: 048
     Dates: start: 20110308, end: 20110414
  6. ACTOS [Concomitant]
     Dosage: UNK
  7. LYRICA [Suspect]
     Dosage: 50 MG/DAY
     Route: 048
     Dates: start: 20101221, end: 20110307
  8. ASPIRIN [Concomitant]
     Dosage: UNK
  9. URINORM [Concomitant]
     Dosage: UNK
  10. LAC B [Concomitant]
     Dosage: UNK
  11. FAMOTIDINE [Concomitant]
     Dosage: UNK
  12. CONIEL [Concomitant]
     Dosage: UNK

REACTIONS (2)
  - GAIT DISTURBANCE [None]
  - ARTHRALGIA [None]
